FAERS Safety Report 19079270 (Version 1)
Quarter: 2021Q1

REPORT INFORMATION
  Report Type: Spontaneous
  Country: US (occurrence: US)
  Receive Date: 20210331
  Receipt Date: 20210331
  Transmission Date: 20210420
  Serious: No
  Sender: FDA-Public Use
  Company Number: US-SA-2021SA104390

PATIENT
  Age: 33 Year
  Sex: Female

DRUGS (8)
  1. ELMIRON [Concomitant]
     Active Substance: PENTOSAN POLYSULFATE SODIUM
  2. BUSPIRON [BUSPIRONE HYDROCHLORIDE] [Concomitant]
     Active Substance: BUSPIRONE HYDROCHLORIDE
  3. AMLODIPINE [Concomitant]
     Active Substance: AMLODIPINE BESYLATE
  4. DULOXETINE. [Concomitant]
     Active Substance: DULOXETINE
  5. QUETIAPINE. [Concomitant]
     Active Substance: QUETIAPINE
  6. DUPIXENT [Suspect]
     Active Substance: DUPILUMAB
     Indication: DERMATITIS ATOPIC
     Dosage: UNK
     Route: 058
     Dates: start: 20210228
  7. LITHIUM CARBONATE. [Concomitant]
     Active Substance: LITHIUM CARBONATE
  8. AUROVELA 24 FE [Concomitant]
     Active Substance: ETHINYL ESTRADIOL\FERROUS FUMARATE\NORETHINDRONE ACETATE

REACTIONS (3)
  - Product dose omission issue [Unknown]
  - Diarrhoea [Unknown]
  - Dermatitis atopic [Unknown]

NARRATIVE: CASE EVENT DATE: 20210318
